FAERS Safety Report 6467199-7 (Version None)
Quarter: 2009Q4

REPORT INFORMATION
  Report Type: 
  Country: None (occurrence: None)
  Receive Date: 20091202
  Receipt Date: 20091118
  Transmission Date: 20100525
  Serious: No
  Sender: FDA-Public Use
  Company Number: US-B.I. PHARMACEUTICALS,INC./RIDGEFIELD-2009-BP-12283BP

PATIENT
  Sex: Male
  Weight: 81.7 kg

DRUGS (4)
  1. COMBIVENT [Suspect]
     Indication: CHRONIC OBSTRUCTIVE PULMONARY DISEASE
     Dosage: 2 PUF
     Route: 055
     Dates: start: 20070101
  2. ADVAIR DISKUS 100/50 [Concomitant]
     Dates: start: 20090115
  3. MOBIC [Concomitant]
     Dosage: 15 MG
     Dates: start: 20091007, end: 20091017
  4. BUPROPION HCL [Concomitant]
     Dates: start: 20090301

REACTIONS (1)
  - DYSGEUSIA [None]
